FAERS Safety Report 13272271 (Version 1)
Quarter: 2017Q1

REPORT INFORMATION
  Report Type: Spontaneous
  Country: US (occurrence: US)
  Receive Date: 20170224
  Receipt Date: 20170224
  Transmission Date: 20170428
  Serious: Yes (Life-Threatening, Hospitalization)
  Sender: FDA-Public Use
  Company Number: None

PATIENT
  Age: 71 Year
  Sex: Male
  Weight: 90.3 kg

DRUGS (1)
  1. VANCOMYCIN [Suspect]
     Active Substance: VANCOMYCIN
     Route: 042
     Dates: start: 20170112, end: 20170213

REACTIONS (5)
  - Acute kidney injury [None]
  - Cellulitis [None]
  - Fluid overload [None]
  - Disease recurrence [None]
  - Tubulointerstitial nephritis [None]

NARRATIVE: CASE EVENT DATE: 20170115
